FAERS Safety Report 13359864 (Version 2)
Quarter: 2017Q2

REPORT INFORMATION
  Report Type: Spontaneous
  Country: FR (occurrence: FR)
  Receive Date: 20170322
  Receipt Date: 20170410
  Transmission Date: 20170830
  Serious: Yes (Other)
  Sender: FDA-Public Use
  Company Number: FR-BRISTOL-MYERS SQUIBB COMPANY-BMS-2017-006535

PATIENT
  Sex: Male
  Weight: 57 kg

DRUGS (2)
  1. KARDEGIC [Suspect]
     Active Substance: ASPIRIN LYSINE
     Indication: PRODUCT USED FOR UNKNOWN INDICATION
     Dosage: 75 MG, UNK
     Route: 065
  2. ELIQUIS [Suspect]
     Active Substance: APIXABAN
     Indication: CEREBROVASCULAR ACCIDENT PROPHYLAXIS
     Dosage: 2.5 MG, QD
     Route: 065
     Dates: start: 20150522, end: 20150527

REACTIONS (3)
  - Off label use [Unknown]
  - Hepatocellular injury [Recovered/Resolved with Sequelae]
  - Cholestasis [Recovered/Resolved with Sequelae]
